FAERS Safety Report 12099302 (Version 1)
Quarter: 2016Q1

REPORT INFORMATION
  Report Type: Spontaneous
  Country: US (occurrence: None)
  Receive Date: 20160219
  Receipt Date: 20160219
  Transmission Date: 20160526
  Serious: No
  Sender: FDA-Public Use
  Company Number: None

PATIENT
  Age: 62 Year
  Sex: Female

DRUGS (1)
  1. STELARA [Suspect]
     Active Substance: USTEKINUMAB
     Dosage: 45 MG Q3M SQ
     Route: 058
     Dates: start: 20150430

REACTIONS (2)
  - Anaemia [None]
  - Urine abnormality [None]

NARRATIVE: CASE EVENT DATE: 20160201
